FAERS Safety Report 17103760 (Version 2)
Quarter: 2020Q1

REPORT INFORMATION
  Report Type: Spontaneous
  Country: BE (occurrence: BE)
  Receive Date: 20191203
  Receipt Date: 20200121
  Transmission Date: 20200409
  Serious: Yes (Other)
  Sender: FDA-Public Use
  Company Number: BE-AUROBINDO-AUR-APL-2019-074682

PATIENT
  Sex: Male

DRUGS (8)
  1. PIMOZIDE. [Suspect]
     Active Substance: PIMOZIDE
     Indication: MOEBIUS II SYNDROME
     Dosage: UNK
     Route: 065
  2. AMISULPRIDE [Suspect]
     Active Substance: AMISULPRIDE
     Indication: MOEBIUS II SYNDROME
     Dosage: UNK
     Route: 065
  3. HALOPERIDOL. [Suspect]
     Active Substance: HALOPERIDOL
     Indication: MOEBIUS II SYNDROME
     Dosage: UNK
     Route: 065
  4. ARIPIPRAZOLE. [Suspect]
     Active Substance: ARIPIPRAZOLE
     Indication: MOEBIUS II SYNDROME
     Dosage: UNK
     Route: 065
  5. PAROXETINE. [Concomitant]
     Active Substance: PAROXETINE
     Indication: PRODUCT USED FOR UNKNOWN INDICATION
     Dosage: UNK
     Route: 065
  6. QUETIAPINE 25MG [Suspect]
     Active Substance: QUETIAPINE
     Indication: PRODUCT USED FOR UNKNOWN INDICATION
     Dosage: 300 MILLIGRAM
     Route: 065
     Dates: start: 2010
  7. RISPERIDONE. [Suspect]
     Active Substance: RISPERIDONE
     Indication: MOEBIUS II SYNDROME
     Dosage: UNK
     Route: 065
  8. PRAZEPAM [Concomitant]
     Active Substance: PRAZEPAM
     Indication: PRODUCT USED FOR UNKNOWN INDICATION
     Dosage: UNK
     Route: 065

REACTIONS (11)
  - Decreased appetite [Unknown]
  - Hallucination [Unknown]
  - Insomnia [Unknown]
  - Dystonia [Recovered/Resolved]
  - Vomiting [Unknown]
  - Psychotic disorder [Unknown]
  - Nightmare [Unknown]
  - Weight increased [Unknown]
  - Paranoia [Unknown]
  - Panic attack [Unknown]
  - Drug intolerance [Unknown]
